FAERS Safety Report 9013328 (Version 1)
Quarter: 2013Q1

REPORT INFORMATION
  Report Type: Spontaneous
  Country: US (occurrence: None)
  Receive Date: 20130107
  Receipt Date: 20130107
  Transmission Date: 20140127
  Serious: Yes (Hospitalization)
  Sender: FDA-Public Use
  Company Number: None

PATIENT
  Age: 45 Year
  Sex: Male
  Weight: 149.2 kg

DRUGS (14)
  1. AZACITIDINE [Suspect]
     Dosage: 100 MG DAILY 5DAYS028 DAYS
     Route: 058
     Dates: start: 20120917, end: 20121130
  2. VALPROIC ACID [Suspect]
     Dosage: 1000 MG TO 1750 MG, BID, PO
     Route: 048
     Dates: start: 20120917
  3. ACYCLOVIR [Concomitant]
  4. AMLODIPINE [Concomitant]
  5. DIVALPROEX SODIUM [Concomitant]
  6. OLIC ACID [Concomitant]
  7. LEVOTHYROXINE [Concomitant]
  8. MULTIPLE VITAMIN [Concomitant]
  9. OMEPRAZOLE [Concomitant]
  10. SULFAMETHOXAZOLE WITH TRIMETHOPRIM [Concomitant]
  11. TACROLIMUS [Concomitant]
  12. TRAMADOL [Concomitant]
  13. TRIAMCINOLONE ACETONIDE 0.1% EXT CREAM [Concomitant]
  14. URSODIOL [Concomitant]

REACTIONS (3)
  - Tachypnoea [None]
  - Dyspnoea [None]
  - Diarrhoea [None]
